APPROVED DRUG PRODUCT: APREMILAST
Active Ingredient: APREMILAST
Strength: 30MG
Dosage Form/Route: TABLET;ORAL
Application: A211788 | Product #003
Applicant: MACLEODS PHARMACEUTICALS LTD
Approved: Nov 25, 2024 | RLD: No | RS: No | Type: DISCN